FAERS Safety Report 8539888 (Version 2)
Quarter: 2013Q1

REPORT INFORMATION
  Report Type: Spontaneous
  Country: US (occurrence: US)
  Receive Date: 20120502
  Receipt Date: 20130102
  Transmission Date: 20140127
  Serious: Yes (Hospitalization, Other)
  Sender: FDA-Public Use
  Company Number: US-BAYER-2012-041601

PATIENT
  Age: 25 Year
  Sex: Female
  Weight: 72.56 kg

DRUGS (4)
  1. YASMIN [Suspect]
     Indication: PREMENSTRUAL SYNDROME
     Dosage: UNK
     Dates: start: 2004, end: 2008
  2. OCELLA [Suspect]
     Indication: PREMENSTRUAL SYNDROME
     Dosage: UNK
     Dates: start: 2004, end: 2008
  3. ADVIL [Concomitant]
     Indication: HEADACHE
  4. ANTIBIOTICS [Concomitant]

REACTIONS (7)
  - Cholecystitis chronic [None]
  - Gallbladder injury [None]
  - Injury [None]
  - General physical health deterioration [None]
  - Emotional distress [None]
  - Pain [None]
  - Off label use [None]
